FAERS Safety Report 21458190 (Version 2)
Quarter: 2022Q4

REPORT INFORMATION
  Report Type: Spontaneous
  Country: US (occurrence: US)
  Receive Date: 20221014
  Receipt Date: 20221031
  Transmission Date: 20230112
  Serious: Yes (Life-Threatening, Hospitalization, Other)
  Sender: FDA-Public Use
  Company Number: US-drreddys-LIT/USA/22/0155758

PATIENT
  Age: 49 Year
  Sex: Male
  Weight: 86 kg

DRUGS (9)
  1. PROPOFOL [Suspect]
     Active Substance: PROPOFOL
     Indication: Induction of anaesthesia
     Dosage: (3.5 MG/KG)
  2. PROPOFOL [Suspect]
     Active Substance: PROPOFOL
     Indication: Maintenance of anaesthesia
     Dosage: 150 MICROG/KG/MIN (TOTAL 1.677G)
  3. FENTANYL CITRATE [Suspect]
     Active Substance: FENTANYL CITRATE
     Indication: General anaesthesia
     Dosage: 100MICROG
     Route: 042
  4. METHADONE [Suspect]
     Active Substance: METHADONE HYDROCHLORIDE
     Indication: General anaesthesia
     Dosage: 10MG (0.12 MG/KG, 0.15 MG/KG IBW)
     Route: 042
  5. METHOCARBAMOL [Concomitant]
     Active Substance: METHOCARBAMOL
     Indication: Depressed level of consciousness
  6. DIAZEPAM [Concomitant]
     Active Substance: DIAZEPAM
     Indication: Depressed level of consciousness
  7. TRAMADOL [Concomitant]
     Active Substance: TRAMADOL
     Indication: Depressed level of consciousness
  8. DULOXETINE [Concomitant]
     Active Substance: DULOXETINE
     Indication: Depressed level of consciousness
  9. TRAZODONE [Concomitant]
     Active Substance: TRAZODONE HYDROCHLORIDE
     Indication: Depressed level of consciousness

REACTIONS (1)
  - Respiratory depression [Recovered/Resolved]
